FAERS Safety Report 19164768 (Version 2)
Quarter: 2021Q2

REPORT INFORMATION
  Report Type: Spontaneous
  Country: CA (occurrence: CA)
  Receive Date: 20210421
  Receipt Date: 20210421
  Transmission Date: 20210717
  Serious: Yes (Death)
  Sender: FDA-Public Use
  Company Number: CA-ALVOGEN-2021-ALVOGEN-116870

PATIENT
  Age: 52 Year
  Sex: Male
  Weight: 90 kg

DRUGS (3)
  1. CASPOFUNGIN [Concomitant]
     Active Substance: CASPOFUNGIN
     Indication: BRONCHOPULMONARY ASPERGILLOSIS
     Dosage: CASPOFUNGIN (70 MG DAY 1, THEN?50 MG/D) WERE INITIATED ON DAY 14.
  2. VORICONAZOLE. [Suspect]
     Active Substance: VORICONAZOLE
     Indication: BRONCHOPULMONARY ASPERGILLOSIS
     Dosage: 6 MG/KG IV TWICE DAILY FOR TWO DOSES THEN?4 MG/KG IV TWICE DAILY
     Route: 042
  3. AMPHOTERICIN B. [Concomitant]
     Active Substance: AMPHOTERICIN B
     Indication: BRONCHOPULMONARY ASPERGILLOSIS
     Dosage: NEBULIZED LIPOSOMAL AMPHOTERICIN B

REACTIONS (2)
  - Treatment failure [Fatal]
  - Drug level below therapeutic [Fatal]
